FAERS Safety Report 25023829 (Version 1)
Quarter: 2025Q1

REPORT INFORMATION
  Report Type: Spontaneous
  Country: CN (occurrence: CN)
  Receive Date: 20250228
  Receipt Date: 20250228
  Transmission Date: 20250408
  Serious: Yes (Other)
  Sender: SANOFI AVENTIS
  Company Number: CN-SA-2025SA060002

PATIENT
  Age: 75 Year
  Sex: Female
  Weight: 49 kg

DRUGS (1)
  1. ZOLPIDEM TARTRATE [Suspect]
     Active Substance: ZOLPIDEM TARTRATE
     Indication: Insomnia
     Dosage: 10 MG, QD
     Route: 048
     Dates: start: 20250219, end: 20250220

REACTIONS (7)
  - Mental disorder [Recovered/Resolved]
  - Ataxia [Recovered/Resolved]
  - Agitation [Recovered/Resolved]
  - Disorganised speech [Recovered/Resolved]
  - Coordination abnormal [Recovered/Resolved]
  - Impatience [Recovered/Resolved]
  - Tangentiality [Recovered/Resolved]

NARRATIVE: CASE EVENT DATE: 20250220
